FAERS Safety Report 10223324 (Version 1)
Quarter: 2014Q2

REPORT INFORMATION
  Report Type: Spontaneous
  Country: US (occurrence: None)
  Receive Date: 20140605
  Receipt Date: 20140605
  Transmission Date: 20141212
  Serious: Yes (Other)
  Sender: FDA-Public Use
  Company Number: UNT-2014-001012

PATIENT
  Age: 62 Year
  Sex: Male
  Weight: 90.2 kg

DRUGS (3)
  1. REMODULIN [Suspect]
     Indication: PULMONARY ARTERIAL HYPERTENSION
     Route: 058
     Dates: start: 201308
  2. ADCIRCA (TADALAFIL) [Concomitant]
  3. LETAIRIS (AMBRISENTAN) [Concomitant]

REACTIONS (5)
  - Wound infection staphylococcal [None]
  - Dermatitis [None]
  - Toxicity to various agents [None]
  - Infusion site erythema [None]
  - Infusion site induration [None]
